FAERS Safety Report 8819272 (Version 1)
Quarter: 2012Q4

REPORT INFORMATION
  Report Type: Spontaneous
  Country: US (occurrence: None)
  Receive Date: 20121004
  Receipt Date: 20121004
  Transmission Date: 20130627
  Serious: Yes (Hospitalization)
  Sender: FDA-Public Use
  Company Number: None

PATIENT
  Age: 12 Year
  Sex: Male
  Weight: 22.1 kg

DRUGS (1)
  1. BORTEZOMIB [Suspect]
     Indication: AUTOIMMUNE PANCYTOPENIA
     Dates: start: 20120921, end: 20121003

REACTIONS (1)
  - Cellulitis [None]
